FAERS Safety Report 7380553-4 (Version None)
Quarter: 2011Q1

REPORT INFORMATION
  Report Type: 
  Country: None (occurrence: None)
  Receive Date: 20110325
  Receipt Date: 20110325
  Transmission Date: 20110831
  Serious: Yes (Congenital Anomaly)
  Sender: FDA-Public Use
  Company Number: None

PATIENT
  Age: 9 Year
  Sex: Female
  Weight: 45.3597 kg

DRUGS (1)
  1. ZOLOFT [Suspect]
     Indication: DEPRESSION
     Dates: start: 20000101, end: 20110324

REACTIONS (7)
  - ATTENTION DEFICIT/HYPERACTIVITY DISORDER [None]
  - MATERNAL DRUGS AFFECTING FOETUS [None]
  - BLINDNESS [None]
  - DEPRESSION [None]
  - ANXIETY [None]
  - DRUG EXPOSURE VIA BREAST MILK [None]
  - NERVE INJURY [None]
